FAERS Safety Report 15921671 (Version 2)
Quarter: 2019Q1

REPORT INFORMATION
  Report Type: Spontaneous
  Country: US (occurrence: US)
  Receive Date: 20190205
  Receipt Date: 20190219
  Transmission Date: 20190417
  Serious: No
  Sender: FDA-Public Use
  Company Number: US-ALLERGAN-1729627US

PATIENT
  Sex: Female

DRUGS (6)
  1. OXYCODONE [Concomitant]
     Active Substance: OXYCODONE
     Indication: PAIN
  2. MORPHINE [Concomitant]
     Active Substance: MORPHINE
     Indication: NECK PAIN
     Dosage: UNK
     Route: 048
  3. TIZANIDINE. [Concomitant]
     Active Substance: TIZANIDINE
     Indication: NECK PAIN
     Dosage: UNK
     Route: 048
  4. BOTOX [Suspect]
     Active Substance: ONABOTULINUMTOXINA
     Indication: TORTICOLLIS
     Dosage: 200 UNITS, SINGLE
     Route: 030
     Dates: start: 20170710, end: 20170710
  5. CELEBREX [Concomitant]
     Active Substance: CELECOXIB
     Indication: NECK PAIN
     Dosage: UNK
     Route: 048
  6. VALIUM [Concomitant]
     Active Substance: DIAZEPAM
     Indication: NECK PAIN
     Dosage: UNK
     Route: 048

REACTIONS (1)
  - Expired product administered [Unknown]
